FAERS Safety Report 17357484 (Version 1)
Quarter: 2020Q1

REPORT INFORMATION
  Report Type: Spontaneous
  Country: US (occurrence: US)
  Receive Date: 20200131
  Receipt Date: 20200131
  Transmission Date: 20200409
  Serious: Yes (Other)
  Sender: FDA-Public Use
  Company Number: US-TEVA-2020-US-1176101

PATIENT
  Sex: Female

DRUGS (1)
  1. CLONIDINE HYDROCHLORIDE. [Suspect]
     Active Substance: CLONIDINE HYDROCHLORIDE
     Indication: HYPERTENSION
     Route: 065
     Dates: start: 20200119

REACTIONS (2)
  - Product formulation issue [Unknown]
  - Syncope [Unknown]

NARRATIVE: CASE EVENT DATE: 20200119
